FAERS Safety Report 4804531-1 (Version None)
Quarter: 2005Q4

REPORT INFORMATION
  Report Type: 
  Country: None (occurrence: None)
  Receive Date: 20051017
  Receipt Date: 20051011
  Transmission Date: 20060501
  Serious: Yes (Hospitalization)
  Sender: FDA-Public Use
  Company Number: HQWYE994505AUG04

PATIENT
  Age: 80 Year
  Sex: Female

DRUGS (7)
  1. CORDARONE [Suspect]
     Indication: ATRIAL FIBRILLATION
     Dosage: 200 MG, ORAL
     Route: 048
     Dates: start: 20040628
  2. CORDARONE [Suspect]
     Indication: SUPRAVENTRICULAR EXTRASYSTOLES
     Dosage: 200 MG, ORAL
     Route: 048
     Dates: start: 20040628
  3. DIGOXIN [Suspect]
     Indication: ATRIAL FIBRILLATION
     Dates: start: 20040628
  4. DIGOXIN [Suspect]
     Indication: SUPRAVENTRICULAR EXTRASYSTOLES
     Dates: start: 20040628
  5. SINTROM [Suspect]
     Indication: ATRIAL FIBRILLATION
     Dosage: 4 MG, ORAL
     Dates: start: 20040628
  6. SINTROM [Suspect]
     Indication: SUPRAVENTRICULAR EXTRASYSTOLES
     Dosage: 4 MG, ORAL
     Dates: start: 20040628
  7. VANCOMYCIN [Concomitant]

REACTIONS (1)
  - RASH PRURITIC [None]
